FAERS Safety Report 7554551-1 (Version None)
Quarter: 2011Q2

REPORT INFORMATION
  Report Type: 
  Country: None (occurrence: None)
  Receive Date: 20110617
  Receipt Date: 20110613
  Transmission Date: 20111010
  Serious: Yes (Other)
  Sender: FDA-Public Use
  Company Number: GB-ABBOTT-11P-167-0707053-00

PATIENT
  Sex: Female

DRUGS (12)
  1. HYPROMELLOSE [Concomitant]
     Indication: PRODUCT USED FOR UNKNOWN INDICATION
     Dosage: EYE DROPS, 4 IN ONE DAY PRN
  2. DIORALYTE [Concomitant]
     Indication: PRODUCT USED FOR UNKNOWN INDICATION
     Dosage: BLACKCURRENT
     Route: 048
  3. HUMIRA [Suspect]
     Indication: CROHN'S DISEASE
     Dates: start: 20080601
  4. CALCICHEW D3 FORTE [Concomitant]
     Indication: PRODUCT USED FOR UNKNOWN INDICATION
  5. OMEPRAZOLE [Concomitant]
     Indication: PRODUCT USED FOR UNKNOWN INDICATION
  6. HUMIRA [Suspect]
     Route: 058
  7. MAGNESIUM ASPARTATE [Concomitant]
     Indication: PRODUCT USED FOR UNKNOWN INDICATION
     Route: 048
  8. ALENDRONATE SODIUM [Concomitant]
     Indication: PRODUCT USED FOR UNKNOWN INDICATION
  9. OILATUM EMOLLIENT [Concomitant]
     Indication: PRODUCT USED FOR UNKNOWN INDICATION
  10. DOMPERIDONE [Concomitant]
     Indication: PRODUCT USED FOR UNKNOWN INDICATION
     Dosage: 3 TIMES IN ONE DAY PRN
  11. LORATADINE [Concomitant]
     Indication: PRODUCT USED FOR UNKNOWN INDICATION
  12. LIQUIGEN EMULSION [Concomitant]
     Indication: PRODUCT USED FOR UNKNOWN INDICATION

REACTIONS (14)
  - ULCERATIVE KERATITIS [None]
  - WRONG TECHNIQUE IN DRUG USAGE PROCESS [None]
  - SKIN EXFOLIATION [None]
  - LIP DRY [None]
  - DRUG DOSE OMISSION [None]
  - ANAEMIA [None]
  - EYE PAIN [None]
  - VISION BLURRED [None]
  - CHAPPED LIPS [None]
  - INFECTED SKIN ULCER [None]
  - HERPES ZOSTER [None]
  - DRY EYE [None]
  - EYELIDS PRURITUS [None]
  - MUCOSA VESICLE [None]
